FAERS Safety Report 9457197 (Version 1)
Quarter: 2013Q3

REPORT INFORMATION
  Report Type: Spontaneous
  Country: JP (occurrence: JP)
  Receive Date: 20130814
  Receipt Date: 20130814
  Transmission Date: 20140515
  Serious: Yes (Hospitalization, Other)
  Sender: FDA-Public Use
  Company Number: JP-009507513-1308JPN004841

PATIENT
  Age: 65 Year
  Sex: Female

DRUGS (2)
  1. BONALON [Suspect]
     Indication: OSTEOPOROSIS
     Dosage: 35 MG, QW
     Route: 048
     Dates: start: 200802, end: 201110
  2. PREDNISOLONE [Concomitant]
     Indication: SKIN ULCER
     Dosage: UNK
     Route: 048
     Dates: start: 200606

REACTIONS (1)
  - Femur fracture [Recovered/Resolved]
